FAERS Safety Report 20919246 (Version 2)
Quarter: 2022Q4

REPORT INFORMATION
  Report Type: Spontaneous
  Country: US (occurrence: US)
  Receive Date: 20220606
  Receipt Date: 20221108
  Transmission Date: 20230112
  Serious: Yes (Hospitalization, Other)
  Sender: FDA-Public Use
  Company Number: US-MLMSERVICE-20220520-3573271-1

PATIENT
  Age: 54 Year
  Sex: Male

DRUGS (3)
  1. OLANZAPINE [Suspect]
     Active Substance: OLANZAPINE
     Indication: Schizophrenia
     Dosage: 5 MG EVERY MORNING
     Route: 065
  2. RISPERIDONE [Suspect]
     Active Substance: RISPERIDONE
     Indication: Hostility
     Dosage: 6 MG/DAY IN DIVIDED DOSING OVER 9 DAYS
     Route: 065
  3. DIVALPROEX SODIUM [Suspect]
     Active Substance: DIVALPROEX SODIUM
     Indication: Aggression
     Dosage: HIS EVENING DOSE OF DVP WAS TAPERED TO 250 MG
     Route: 065

REACTIONS (2)
  - Neutropenia [Recovered/Resolved]
  - Condition aggravated [Recovered/Resolved]
